FAERS Safety Report 7789053-0 (Version None)
Quarter: 2011Q3

REPORT INFORMATION
  Report Type: 
  Country: None (occurrence: None)
  Receive Date: 20110930
  Receipt Date: 20110922
  Transmission Date: 20111222
  Serious: Yes (Other)
  Sender: FDA-Public Use
  Company Number: DE-PFIZER INC-2011231400

PATIENT
  Age: 73 Year
  Sex: Male

DRUGS (9)
  1. METHOTREXATE [Concomitant]
  2. PROPAFENONE HCL [Concomitant]
  3. ALLOPURINOL [Concomitant]
  4. TILIDINE [Concomitant]
  5. PANTOPRAZOLE [Suspect]
     Indication: GASTROINTESTINAL HAEMORRHAGE
     Dosage: UNK
     Route: 042
     Dates: start: 20110911, end: 20110912
  6. ASPIRIN [Concomitant]
  7. ALENDRONATE SODIUM [Concomitant]
  8. METHYLPREDNISOLONE [Concomitant]
  9. FOLIC ACID [Concomitant]

REACTIONS (4)
  - OEDEMA PERIPHERAL [None]
  - EYE HAEMORRHAGE [None]
  - TACHYCARDIA [None]
  - BODY TEMPERATURE INCREASED [None]
